FAERS Safety Report 9905113 (Version 1)
Quarter: 2013Q2

REPORT INFORMATION
  Report Type: Spontaneous
  Country: US (occurrence: None)
  Receive Date: 20130305
  Receipt Date: 20130305
  Transmission Date: 20140414
  Serious: Yes (Other)
  Sender: FDA-Public Use
  Company Number: 163-21880-12041948

PATIENT
  Age: 67 Year
  Sex: Male
  Weight: 71 kg

DRUGS (12)
  1. REVLIMID [Suspect]
     Indication: NON-HODGKIN^S LYMPHOMA
     Dosage: 5 MG, 1 IN 1 D, PO
     Route: 048
     Dates: start: 201203
  2. RITUXAN (RITUXIMAB) (UNKNOWN)? [Concomitant]
  3. LEVAQUIN (LEVOFLOXACIN) (UNKNOWN) [Concomitant]
  4. VALACYCLOVIR (VALACICLOVIR HYDROCHLORIDE) (UNKNOWN) [Concomitant]
  5. ASA (ACETYSALICYLIC ACID) (UNKNOWN) [Concomitant]
  6. VYTORIN (INEGY) (UNKNOWN) [Concomitant]
  7. CO-Q10 (UBIDECARENONE) (UNKNOWN) [Concomitant]
  8. NEURONTIN (GABAPENTIN) (UNKNOWN) [Concomitant]
  9. PRILOSEC (OMEPRAZOLE) (UNKNOWN) [Concomitant]
  10. MIRALAX (MACROGOL) (UNKNOWN) [Concomitant]
  11. OXYCODONE (OXYCODONE) (UNKNOWN) (OXYCODONE) [Concomitant]
  12. PREDNISONE (PREDNISONE) (UNKNOWN) [Concomitant]

REACTIONS (1)
  - Disease progression [None]
